FAERS Safety Report 7983788-2 (Version None)
Quarter: 2011Q4

REPORT INFORMATION
  Report Type: 
  Country: None (occurrence: None)
  Receive Date: 20111215
  Receipt Date: 20111102
  Transmission Date: 20120403
  Serious: Yes (Other)
  Sender: FDA-Public Use
  Company Number: PHHY2011JP100851

PATIENT

DRUGS (1)
  1. NEORAL [Suspect]
     Indication: SYSTEMIC LUPUS ERYTHEMATOSUS
     Dosage: APPROXIMATELY 2.5 MG/KG/ DAY

REACTIONS (1)
  - SYSTEMIC LUPUS ERYTHEMATOSUS [None]
